FAERS Safety Report 6873936-X (Version None)
Quarter: 2010Q3

REPORT INFORMATION
  Report Type: 
  Country: None (occurrence: None)
  Receive Date: 20100723
  Receipt Date: 20090402
  Transmission Date: 20110219
  Serious: Yes (Other)
  Sender: FDA-Public Use
  Company Number: US-PFIZER INC-2009197253

PATIENT
  Sex: Female
  Weight: 49.887 kg

DRUGS (1)
  1. CHANTIX [Suspect]
     Indication: SMOKING CESSATION THERAPY
     Dosage: UNK
     Dates: start: 20080101, end: 20090101

REACTIONS (3)
  - DEPRESSION [None]
  - NAUSEA [None]
  - SUICIDAL IDEATION [None]
